FAERS Safety Report 16366928 (Version 1)
Quarter: 2019Q2

REPORT INFORMATION
  Report Type: Spontaneous
  Country: US (occurrence: US)
  Receive Date: 20190529
  Receipt Date: 20190529
  Transmission Date: 20190711
  Serious: Yes (Other)
  Sender: FDA-Public Use
  Company Number: US-SA-2019SA147387

PATIENT
  Sex: Female

DRUGS (1)
  1. DUPIXENT [Suspect]
     Active Substance: DUPILUMAB
     Indication: DERMATITIS ATOPIC
     Dosage: 300 MG, QOW
     Route: 058
     Dates: start: 20170926

REACTIONS (6)
  - Blood urine present [Unknown]
  - Dermatitis [Unknown]
  - Urinary tract infection [Unknown]
  - Diverticulitis [Unknown]
  - Chromaturia [Unknown]
  - Pain [Unknown]
